FAERS Safety Report 23985022 (Version 1)
Quarter: 2024Q2

REPORT INFORMATION
  Report Type: Spontaneous
  Country: US (occurrence: US)
  Receive Date: 20240618
  Receipt Date: 20240618
  Transmission Date: 20240715
  Serious: Yes (Other)
  Sender: FDA-Public Use
  Company Number: US-AUROBINDO-AUR-APL-2024-030394

PATIENT
  Age: 31 Year
  Sex: Female
  Weight: 113 kg

DRUGS (4)
  1. CLOZAPINE [Suspect]
     Active Substance: CLOZAPINE
     Indication: Antipsychotic therapy
     Dosage: 125 MILLIGRAM, TWO TIMES A DAY
     Route: 065
     Dates: start: 202401
  2. CLOZAPINE [Suspect]
     Active Substance: CLOZAPINE
     Dosage: 125 MILLIGRAM, TWO TIMES A DAY
     Route: 065
     Dates: start: 20240417
  3. CLOZAPINE [Suspect]
     Active Substance: CLOZAPINE
     Indication: Antipsychotic therapy
     Dosage: 125 MILLIGRAM, TWO TIMES A DAY
     Route: 065
     Dates: start: 202401
  4. CLOZAPINE [Suspect]
     Active Substance: CLOZAPINE
     Dosage: 125 MILLIGRAM, TWO TIMES A DAY
     Route: 065
     Dates: start: 20240417

REACTIONS (1)
  - Anaphylactic reaction [Recovered/Resolved]

NARRATIVE: CASE EVENT DATE: 20240509
